FAERS Safety Report 4946426-9 (Version None)
Quarter: 2006Q1

REPORT INFORMATION
  Report Type: 
  Country: None (occurrence: None)
  Receive Date: 20060313
  Receipt Date: 20060228
  Transmission Date: 20060701
  Serious: Yes (Hospitalization)
  Sender: FDA-Public Use
  Company Number: 222637

PATIENT
  Age: 61 Year
  Sex: Male
  Weight: 89.6 kg

DRUGS (5)
  1. EFALIZUMAB (EFALIZUMAB) PWDR + SOLVENT, INJECTION SOLN, 125MG [Suspect]
     Indication: PSORIASIS
     Dosage: 1/WEEK SUBCUTANEOUS
     Route: 058
     Dates: start: 20030305, end: 20030521
  2. EFALIZUMAB (EFALIZUMAB) PWDR + SOLVENT, INJECTION SOLN, 125MG [Suspect]
     Indication: PSORIASIS
     Dosage: 1/WEEK SUBCUTANEOUS
     Route: 058
     Dates: start: 20040107, end: 20050726
  3. EFALIZUMAB (EFALIZUMAB) PWDR + SOLVENT, INJECTION SOLN, 125MG [Suspect]
     Indication: PSORIASIS
     Dosage: 1/WEEK SUBCUTANEOUS
     Route: 058
     Dates: start: 20051216, end: 20060217
  4. TOPICAL STEROID [Concomitant]
  5. GLUCOPHAGE [Concomitant]

REACTIONS (2)
  - PNEUMONITIS [None]
  - PULMONARY NECROSIS [None]
